FAERS Safety Report 16998192 (Version 1)
Quarter: 2019Q4

REPORT INFORMATION
  Report Type: Spontaneous
  Country: US (occurrence: US)
  Receive Date: 20190924
  Receipt Date: 20190924
  Transmission Date: 20200122
  Serious: No
  Sender: FDA-Public Use
  Company Number: None

PATIENT
  Age: 60 Year
  Sex: Female

DRUGS (1)
  1. BOTOX [Suspect]
     Active Substance: ONABOTULINUMTOXINA
     Dosage: ?          OTHER FREQUENCY:OTHER;?
     Route: 030
     Dates: start: 20190715

REACTIONS (7)
  - Impaired healing [None]
  - Injection site swelling [None]
  - Injection site scab [None]
  - Injection site haemorrhage [None]
  - Injection site reaction [None]
  - Acne [None]
  - Eye discharge [None]

NARRATIVE: CASE EVENT DATE: 20190731
